FAERS Safety Report 21586407 (Version 1)
Quarter: 2022Q4

REPORT INFORMATION
  Report Type: Spontaneous
  Country: US (occurrence: US)
  Receive Date: 20221112
  Receipt Date: 20221112
  Transmission Date: 20230113
  Serious: No
  Sender: FDA-Public Use
  Company Number: US-SA-SAC20221107001666

PATIENT
  Age: 69 Year
  Sex: Male

DRUGS (1)
  1. DUPIXENT [Suspect]
     Active Substance: DUPILUMAB
     Indication: Nasal polyps
     Dosage: UNK
     Route: 058
     Dates: start: 20220730

REACTIONS (3)
  - Sleep disorder [Not Recovered/Not Resolved]
  - Taste disorder [Recovering/Resolving]
  - Injection site pain [Recovered/Resolved]

NARRATIVE: CASE EVENT DATE: 20220101
